FAERS Safety Report 9820371 (Version 1)
Quarter: 2014Q1

REPORT INFORMATION
  Report Type: Spontaneous
  Country: US (occurrence: None)
  Receive Date: 20140114
  Receipt Date: 20140114
  Transmission Date: 20141002
  Serious: Yes (Other)
  Sender: FDA-Public Use
  Company Number: IMP_06932_2014

PATIENT
  Age: 58 Year
  Sex: Female
  Weight: 58.06 kg

DRUGS (3)
  1. MIDODRINE [Suspect]
     Indication: PROPHYLAXIS
     Route: 048
     Dates: start: 20131213
  2. B12 /00056201/ [Concomitant]
  3. THYROID [Concomitant]

REACTIONS (6)
  - Cough [None]
  - Rhinorrhoea [None]
  - Choking [None]
  - Dyspnoea [None]
  - Asthma [None]
  - Hypersensitivity [None]
